FAERS Safety Report 13690475 (Version 1)
Quarter: 2017Q2

REPORT INFORMATION
  Report Type: Spontaneous
  Country: US (occurrence: US)
  Receive Date: 20170626
  Receipt Date: 20170626
  Transmission Date: 20170830
  Serious: No
  Sender: FDA-Public Use
  Company Number: US-AMGEN-USASP2017094824

PATIENT

DRUGS (1)
  1. ENBREL [Suspect]
     Active Substance: ETANERCEPT
     Indication: PRODUCT USED FOR UNKNOWN INDICATION
     Dosage: 50 MG, UNK
     Route: 065

REACTIONS (7)
  - Injection site bruising [Unknown]
  - Injection site pruritus [Unknown]
  - Drug ineffective [Unknown]
  - Injection site erythema [Unknown]
  - Injection site rash [Unknown]
  - Injection site swelling [Unknown]
  - Injection site pain [Unknown]
